FAERS Safety Report 18061999 (Version 3)
Quarter: 2021Q1

REPORT INFORMATION
  Report Type: Report from Study
  Country: FR (occurrence: FR)
  Receive Date: 20200723
  Receipt Date: 20210215
  Transmission Date: 20210419
  Serious: Yes (Life-Threatening, Hospitalization, Other)
  Sender: FDA-Public Use
  Company Number: FR-SA-2020SA140240

PATIENT
  Age: 53 Year
  Sex: Male

DRUGS (24)
  1. HEPARINE [HEPARIN] [Concomitant]
     Active Substance: HEPARIN SODIUM
  2. AMOXYCILLIN [AMOXICILLIN] [Concomitant]
  3. REMIFENTANIL [Concomitant]
     Active Substance: REMIFENTANIL
  4. ACIDE CLAVULANIQUE [Concomitant]
     Active Substance: CLAVULANIC ACID
  5. PROPOFOL. [Concomitant]
     Active Substance: PROPOFOL
  6. FORLAX [Concomitant]
     Active Substance: POLYETHYLENE GLYCOL 4000
  7. XATRAL [Concomitant]
     Active Substance: ALFUZOSIN
  8. SULFAMETHOXAZOLE;TRIMETHOPRIM [Concomitant]
     Active Substance: SULFAMETHOXAZOLE\TRIMETHOPRIM
  9. METHYLPREDNISOLONE HEMISUCCINATE [Concomitant]
     Active Substance: METHYLPREDNISOLONE HEMISUCCINATE
  10. SARILUMAB [Suspect]
     Active Substance: SARILUMAB
     Indication: COVID-19
     Dosage: 400 MG, 1X
     Route: 042
     Dates: start: 20200328, end: 20200328
  11. MIDAZOLAM. [Concomitant]
     Active Substance: MIDAZOLAM
  12. LEVOTHYROX [Concomitant]
     Active Substance: LEVOTHYROXINE
  13. METHYLPREDNISOLONE. [Concomitant]
     Active Substance: METHYLPREDNISOLONE
  14. VITAMIN B1 AND B6 [Concomitant]
     Active Substance: PYRIDOXINE HYDROCHLORIDE\THIAMINE HYDROCHLORIDE
  15. TAZOCILLINE [Concomitant]
     Active Substance: PIPERACILLIN SODIUM\TAZOBACTAM SODIUM
     Dates: start: 20200414, end: 20200420
  16. VORICONAZOL [Concomitant]
     Active Substance: VORICONAZOLE
  17. NORADRENALINE (NORPINEPHRINE) [Concomitant]
     Active Substance: NOREPINEPHRINE
  18. DEXDOR [Concomitant]
     Active Substance: DEXMEDETOMIDINE HYDROCHLORIDE
  19. CEFTRIAXONE. [Concomitant]
     Active Substance: CEFTRIAXONE
     Dates: start: 20200414, end: 20200420
  20. MEROPENEM. [Concomitant]
     Active Substance: MEROPENEM
  21. ESOMEPRAZOL [ESOMEPRAZOLE] [Concomitant]
     Active Substance: ESOMEPRAZOLE
  22. BACTRIM [Concomitant]
     Active Substance: SULFAMETHOXAZOLE\TRIMETHOPRIM
  23. LOVENOX [LEVOFLOXACIN] [Concomitant]
     Active Substance: LEVOFLOXACIN
  24. LOVENOX [Concomitant]
     Active Substance: ENOXAPARIN SODIUM

REACTIONS (9)
  - Pneumonia [Recovered/Resolved]
  - Anaemia [Recovered/Resolved]
  - Escherichia infection [Recovered/Resolved]
  - Hepatocellular injury [Recovered/Resolved]
  - Pneumonia streptococcal [Recovered/Resolved]
  - Enterobacter infection [Recovered/Resolved]
  - Escherichia infection [Recovered/Resolved]
  - Pneumonia [Recovered/Resolved]
  - Fungal infection [Recovered/Resolved]

NARRATIVE: CASE EVENT DATE: 20200401
